FAERS Safety Report 25496310 (Version 1)
Quarter: 2025Q2

REPORT INFORMATION
  Report Type: Report from Study
  Country: US (occurrence: US)
  Receive Date: 20250630
  Receipt Date: 20250630
  Transmission Date: 20250717
  Serious: Yes (Other)
  Sender: REGENERON
  Company Number: US-REGENERON PHARMACEUTICALS, INC.-2025-104862

PATIENT
  Sex: Female

DRUGS (1)
  1. CEMIPLIMAB [Suspect]
     Active Substance: CEMIPLIMAB
     Indication: Product used for unknown indication
     Dosage: 350 MG, Q3W
     Route: 042
     Dates: start: 202501, end: 20250508

REACTIONS (5)
  - Rectal haemorrhage [Unknown]
  - Toxicity to various agents [Unknown]
  - Proctalgia [Unknown]
  - Skin exfoliation [Unknown]
  - Constipation [Unknown]
